FAERS Safety Report 5932798-5 (Version None)
Quarter: 2008Q4

REPORT INFORMATION
  Report Type: 
  Country: None (occurrence: None)
  Receive Date: 20081028
  Receipt Date: 20081017
  Transmission Date: 20090506
  Serious: Yes (Hospitalization)
  Sender: FDA-Public Use
  Company Number: B0542872A

PATIENT
  Age: 19 Year
  Sex: Female

DRUGS (3)
  1. DEROXAT [Suspect]
     Route: 048
     Dates: start: 20080901, end: 20081010
  2. SERESTA [Suspect]
     Route: 048
     Dates: start: 20080901, end: 20081010
  3. IMOVANE [Suspect]
     Route: 048
     Dates: start: 20080901, end: 20081010

REACTIONS (4)
  - DYSPNOEA [None]
  - EOSINOPHILIC PNEUMONIA [None]
  - HYPOXIA [None]
  - INTERSTITIAL LUNG DISEASE [None]
